FAERS Safety Report 4636844-0 (Version None)
Quarter: 2005Q2

REPORT INFORMATION
  Report Type: 
  Country: None (occurrence: None)
  Receive Date: 20050414
  Receipt Date: 20050316
  Transmission Date: 20051028
  Serious: No
  Sender: FDA-Public Use
  Company Number: 2005AP02042

PATIENT

DRUGS (7)
  1. XYLOCAINE [Suspect]
     Indication: TACHYCARDIA FOETAL
     Dosage: COMMENCED AT 28 WEEKS GESTATION
  2. INDERAL [Suspect]
     Indication: TACHYCARDIA FOETAL
     Dosage: COMMENCED AT 28 WEEKS GESTATION
  3. INDERAL [Suspect]
     Indication: TACHYCARDIA FOETAL
     Dosage: DOSE INCREASED AT 31 WEEKS 2 DAYS GESTATION
  4. MAGNESIUM SULFATE [Suspect]
     Indication: TACHYCARDIA FOETAL
     Dosage: COMMENCED AT 28 WEEKS GESTATION
  5. MAGNESIUM SULFATE [Suspect]
     Indication: TACHYCARDIA FOETAL
     Dosage: DOSE INCREASED AT 31 WEEKS 2 DAYS GESTATION
  6. MEXILETINE HCL [Suspect]
     Indication: TACHYCARDIA FOETAL
     Dosage: COMMENCED AT 31 WEEKS 2 DAYS GESTATION
  7. DEXAMETHASONE [Concomitant]

REACTIONS (11)
  - ATRIOVENTRICULAR BLOCK [None]
  - BRADYCARDIA NEONATAL [None]
  - CARDIOMEGALY [None]
  - DISEASE RECURRENCE [None]
  - HYPERLACTACIDAEMIA [None]
  - INDUCED LABOUR [None]
  - LONG QT SYNDROME [None]
  - PREMATURE BABY [None]
  - TACHYCARDIA FOETAL [None]
  - TORSADE DE POINTES [None]
  - VENTRICULAR TACHYCARDIA [None]
